FAERS Safety Report 9227877 (Version 1)
Quarter: 2013Q2

REPORT INFORMATION
  Report Type: Spontaneous
  Country: IT (occurrence: None)
  Receive Date: 20130410
  Receipt Date: 20130410
  Transmission Date: 20140414
  Serious: Yes (Other)
  Sender: FDA-Public Use
  Company Number: 2013AP004275

PATIENT
  Age: 79 Year
  Sex: Female

DRUGS (2)
  1. CLARITHROMYCIN [Suspect]
     Indication: PYREXIA
     Route: 048
     Dates: start: 20130307, end: 20130311
  2. TACHIPIRINA [Suspect]
     Indication: PYREXIA
     Route: 048
     Dates: start: 20130307, end: 20130311

REACTIONS (2)
  - Loss of consciousness [None]
  - Vertigo [None]
